FAERS Safety Report 25995162 (Version 2)
Quarter: 2025Q4

REPORT INFORMATION
  Report Type: Spontaneous
  Country: ZA (occurrence: ZA)
  Receive Date: 20251104
  Receipt Date: 20251106
  Transmission Date: 20260119
  Serious: Yes (Death, Hospitalization)
  Sender: CSL BEHRING
  Company Number: ZA-ROCHE-10000417382

PATIENT
  Sex: Male

DRUGS (1)
  1. MIRCERA [Suspect]
     Active Substance: METHOXY POLYETHYLENE GLYCOL-EPOETIN BETA
     Indication: Product used for unknown indication
     Dosage: 150 MG
     Route: 065

REACTIONS (33)
  - Death [Fatal]
  - Kidney infection [Unknown]
  - Pneumonia [Unknown]
  - Pulmonary oedema [Unknown]
  - Haemoglobin decreased [Unknown]
  - Red blood cell count decreased [Unknown]
  - Haematocrit decreased [Unknown]
  - Lymphocyte count decreased [Unknown]
  - Eosinophil count decreased [Unknown]
  - Platelet count decreased [Unknown]
  - C-reactive protein increased [Unknown]
  - Blood sodium decreased [Unknown]
  - Blood potassium increased [Unknown]
  - Blood chloride decreased [Unknown]
  - Carbon dioxide decreased [Unknown]
  - Anion gap increased [Unknown]
  - Blood urea increased [Unknown]
  - Blood creatinine increased [Unknown]
  - Glomerular filtration rate decreased [Unknown]
  - N-terminal prohormone brain natriuretic peptide increased [Unknown]
  - Vitamin B12 increased [Unknown]
  - Mean cell haemoglobin concentration decreased [Unknown]
  - Mean cell haemoglobin decreased [Unknown]
  - Red cell distribution width increased [Unknown]
  - Erythroblast count increased [Unknown]
  - Mean platelet volume increased [Unknown]
  - Procalcitonin increased [Unknown]
  - Protein total decreased [Unknown]
  - Globulins decreased [Unknown]
  - Ammonia increased [Unknown]
  - Blood iron decreased [Unknown]
  - Oxygen saturation decreased [Unknown]
  - Tri-iodothyronine free decreased [Unknown]

NARRATIVE: CASE EVENT DATE: 20250621
